FAERS Safety Report 5228748-X (Version None)
Quarter: 2007Q1

REPORT INFORMATION
  Report Type: 
  Country: None (occurrence: None)
  Receive Date: 20070131
  Receipt Date: 20070123
  Transmission Date: 20070707
  Serious: No
  Sender: FDA-Public Use
  Company Number: TPA2006A01410

PATIENT
  Age: 72 Year
  Sex: Female
  Weight: 86.1834 kg

DRUGS (11)
  1. ROZEREM [Suspect]
     Indication: INSOMNIA
     Dosage: 8 MG, QHS, PER ORAL
     Route: 048
     Dates: start: 20060818, end: 20060819
  2. ALBUTEROL [Concomitant]
  3. SPIRIVA [Concomitant]
  4. BUSPIRONE HCL [Concomitant]
  5. TRANDATE [Concomitant]
  6. NEXIUM [Concomitant]
  7. LORAZEPAM [Concomitant]
  8. LEVOTHYROXINE SODIUM [Concomitant]
  9. LISINOPRIL [Concomitant]
  10. ZETIA [Concomitant]
  11. GABAPENTIN [Concomitant]

REACTIONS (4)
  - ASTHMA [None]
  - INAPPROPRIATE SCHEDULE OF DRUG ADMINISTRATION [None]
  - INSOMNIA [None]
  - RESPIRATORY DISTRESS [None]
